FAERS Safety Report 15249422 (Version 3)
Quarter: 2018Q3

REPORT INFORMATION
  Report Type: Report from Study
  Country: US (occurrence: US)
  Receive Date: 20180807
  Receipt Date: 20180925
  Transmission Date: 20181010
  Serious: Yes (Hospitalization, Other)
  Sender: FDA-Public Use
  Company Number: US-SA-2018SA205990

PATIENT
  Age: 39 Year
  Sex: Male
  Weight: 87.3 kg

DRUGS (16)
  1. GEMCITABINE HYDROCHLORIDE. [Suspect]
     Active Substance: GEMCITABINE HYDROCHLORIDE
     Dosage: 500 MG/M2
     Route: 042
     Dates: start: 20180613, end: 20180613
  2. ALPRAZOLAM. [Concomitant]
     Active Substance: ALPRAZOLAM
  3. AMLODIPINE [Concomitant]
     Active Substance: AMLODIPINE BESYLATE
  4. MACROGOL [Concomitant]
     Active Substance: POLYETHYLENE GLYCOLS
  5. LIDOCAINE/PRILOCAINE [Concomitant]
     Active Substance: LIDOCAINE\PRILOCAINE
  6. GEMCITABINE HYDROCHLORIDE. [Suspect]
     Active Substance: GEMCITABINE HYDROCHLORIDE
     Indication: SOFT TISSUE SARCOMA
     Dosage: 500 MG/M2
     Route: 042
     Dates: start: 20171024, end: 20171024
  7. OXYCODONE [Concomitant]
     Active Substance: OXYCODONE
  8. DOCETAXEL. [Suspect]
     Active Substance: DOCETAXEL
     Indication: SOFT TISSUE SARCOMA
     Dosage: 45 MG/M2, UNK
     Route: 042
     Dates: start: 20171101, end: 20171101
  9. ATENOLOL. [Concomitant]
     Active Substance: ATENOLOL
  10. LABETALOL [Concomitant]
     Active Substance: LABETALOL\LABETALOL HYDROCHLORIDE
  11. DOCETAXEL. [Suspect]
     Active Substance: DOCETAXEL
     Dosage: 45 MG/M2, QCY
     Route: 042
     Dates: start: 20180613, end: 20180613
  12. PANTOPRAZOLE [Concomitant]
     Active Substance: PANTOPRAZOLE
  13. SODIUM BICARBONATE. [Concomitant]
     Active Substance: SODIUM BICARBONATE
  14. DILTIAZEM. [Concomitant]
     Active Substance: DILTIAZEM
  15. ONDANSETRON [Concomitant]
     Active Substance: ONDANSETRON
  16. SENNA ALEXANDRINA [Concomitant]
     Active Substance: SENNA LEAF

REACTIONS (5)
  - Acute kidney injury [Recovering/Resolving]
  - Anaemia [Recovering/Resolving]
  - Thrombocytopenia [Recovering/Resolving]
  - Thrombotic microangiopathy [Recovering/Resolving]
  - Haemolytic uraemic syndrome [Recovering/Resolving]

NARRATIVE: CASE EVENT DATE: 20180706
